FAERS Safety Report 6793268-8 (Version None)
Quarter: 2010Q2

REPORT INFORMATION
  Report Type: 
  Country: None (occurrence: None)
  Receive Date: 20100624
  Receipt Date: 20091022
  Transmission Date: 20101027
  Serious: Yes (Death)
  Sender: FDA-Public Use
  Company Number: US-MYLANLABS-2009S1017697

PATIENT
  Age: 74 Year
  Sex: Male
  Weight: 77.11 kg

DRUGS (17)
  1. CLOZAPINE [Suspect]
     Indication: PARKINSON'S DISEASE
     Route: 048
     Dates: start: 20090519
  2. ZOLPIDEM [Concomitant]
     Dosage: 5 - 10 HS PRN REST
     Route: 048
  3. LUNESTA [Concomitant]
     Dosage: PRN
     Route: 048
  4. ABILFY [Concomitant]
     Indication: AGITATION
     Route: 048
     Dates: start: 20090928
  5. VITAMIN D [Concomitant]
     Route: 048
  6. FLOMAX /01280302/ [Concomitant]
     Dosage: FOR PROSTATE
     Route: 048
     Dates: start: 20090904
  7. PROVIGIL [Concomitant]
     Indication: HYPERSOMNIA
     Route: 048
     Dates: start: 20090904
  8. EXELON [Concomitant]
     Route: 062
     Dates: start: 20090914
  9. PLAVIX [Concomitant]
     Dosage: FOR CIRCULATION
     Route: 048
     Dates: start: 20090914
  10. PANTOPRAZOLE [Concomitant]
     Dosage: FOR STOMACH
     Route: 048
     Dates: start: 20090825
  11. GLIPIZIDE [Concomitant]
     Route: 048
     Dates: start: 20090914
  12. POTASSIUM [Concomitant]
     Route: 048
     Dates: start: 20090909
  13. DORZOLAMIDE HYDROCHLORIDE AND TIMOLOL MALEATE [Concomitant]
     Dosage: 1 DROP EACH EYE BID
     Route: 047
  14. CARBIDOPA-LEVODOPA [Concomitant]
     Route: 048
     Dates: start: 20090923
  15. FLUOXETINE HCL [Concomitant]
     Route: 048
     Dates: start: 20090923
  16. XALATAN [Concomitant]
     Indication: GLAUCOMA
     Dosage: 1 DROP IN BOTH EYES AT BEDTIME FOR GLAUCOMA
     Route: 047
  17. LIPITOR [Concomitant]
     Indication: BLOOD CHOLESTEROL INCREASED
     Dates: start: 20090914

REACTIONS (1)
  - MYOCARDIAL INFARCTION [None]
